FAERS Safety Report 19875793 (Version 2)
Quarter: 2021Q4

REPORT INFORMATION
  Report Type: Spontaneous
  Country: JP (occurrence: JP)
  Receive Date: 20210924
  Receipt Date: 20211215
  Transmission Date: 20220303
  Serious: No
  Sender: FDA-Public Use
  Company Number: JP-JNJFOC-20210936413

PATIENT
  Age: 60 Year
  Sex: Female

DRUGS (2)
  1. SIMPONI [Suspect]
     Active Substance: GOLIMUMAB
     Indication: Rheumatoid arthritis
     Route: 058
     Dates: start: 201409, end: 2016
  2. METHOTREXATE [Concomitant]
     Active Substance: METHOTREXATE
     Dosage: DOSE UNKNOWN
     Dates: end: 2020

REACTIONS (5)
  - Productive cough [Recovered/Resolved]
  - Computerised tomogram abnormal [Recovered/Resolved]
  - Off label use [Not Recovered/Not Resolved]
  - Inappropriate schedule of product administration [Not Recovered/Not Resolved]
  - Inappropriate schedule of product administration [Not Recovered/Not Resolved]

NARRATIVE: CASE EVENT DATE: 20170101
